FAERS Safety Report 19374624 (Version 1)
Quarter: 2021Q2

REPORT INFORMATION
  Report Type: Report from Study
  Country: IN (occurrence: IN)
  Receive Date: 20210604
  Receipt Date: 20210604
  Transmission Date: 20210717
  Serious: Yes (Death)
  Sender: FDA-Public Use
  Company Number: NVSC2019IN076381

PATIENT
  Age: 66 Year
  Sex: Male

DRUGS (2)
  1. VYMADA [Suspect]
     Active Substance: SACUBITRIL\VALSARTAN
     Indication: CARDIAC FAILURE
     Dosage: 0.5 DF(1/2 OF 200 MG TABLET), BID
     Route: 065
     Dates: start: 20191212
  2. VYMADA [Suspect]
     Active Substance: SACUBITRIL\VALSARTAN
     Dosage: 200 MG, BID
     Route: 048
     Dates: start: 20191212

REACTIONS (2)
  - Wrong technique in product usage process [Unknown]
  - Death [Fatal]

NARRATIVE: CASE EVENT DATE: 20191212
